FAERS Safety Report 17855303 (Version 1)
Quarter: 2020Q2

REPORT INFORMATION
  Report Type: Spontaneous
  Country: CA (occurrence: CA)
  Receive Date: 20200603
  Receipt Date: 20200603
  Transmission Date: 20200714
  Serious: Yes (Other)
  Sender: FDA-Public Use
  Company Number: CA-BAXTER-2020BAX011279

PATIENT
  Sex: Female

DRUGS (4)
  1. DOXORUBICIN [Suspect]
     Active Substance: DOXORUBICIN
     Indication: SYNOVIAL SARCOMA
     Dosage: DOSAGE FORM: SOLUTION INTRAVENOUS
     Route: 065
  2. DOCETAXEL. [Suspect]
     Active Substance: DOCETAXEL
     Indication: SYNOVIAL SARCOMA
     Dosage: DOSAGE FORM: SOLUTION INTRAVENOUS
     Route: 065
  3. GEMCITABINE. [Suspect]
     Active Substance: GEMCITABINE
     Indication: SYNOVIAL SARCOMA
     Dosage: DOSAGE FORM: NOT SPECIFIED
     Route: 065
  4. IFEX [Suspect]
     Active Substance: IFOSFAMIDE
     Indication: SYNOVIAL SARCOMA
     Route: 065

REACTIONS (3)
  - Malignant neoplasm progression [Unknown]
  - Synovial sarcoma [Unknown]
  - Metastases to lung [Unknown]
